FAERS Safety Report 12897150 (Version 2)
Quarter: 2016Q4

REPORT INFORMATION
  Report Type: Spontaneous
  Country: US (occurrence: US)
  Receive Date: 20161031
  Receipt Date: 20161116
  Transmission Date: 20170207
  Serious: No
  Sender: FDA-Public Use
  Company Number: US-009507513-1610USA010353

PATIENT
  Sex: Female
  Weight: 76.19 kg

DRUGS (2)
  1. NEXPLANON [Suspect]
     Active Substance: ETONOGESTREL
     Indication: CONTRACEPTION
     Dosage: UPPER LEFT ARM
     Route: 042
     Dates: start: 20161013, end: 20161014
  2. NEXPLANON [Suspect]
     Active Substance: ETONOGESTREL
     Dosage: FOR 3 YEARS
     Route: 059
     Dates: start: 201310, end: 20161013

REACTIONS (3)
  - Implant site haemorrhage [Recovered/Resolved]
  - Device deployment issue [Recovered/Resolved]
  - Incorrect route of drug administration [Unknown]

NARRATIVE: CASE EVENT DATE: 20161013
